FAERS Safety Report 7851580-5 (Version None)
Quarter: 2011Q4

REPORT INFORMATION
  Report Type: 
  Country: None (occurrence: None)
  Receive Date: 20111026
  Receipt Date: 20111019
  Transmission Date: 20120403
  Serious: Yes (Hospitalization)
  Sender: FDA-Public Use
  Company Number: ES-ABBOTT-11P-144-0841814-00

PATIENT
  Sex: Male
  Weight: 82 kg

DRUGS (2)
  1. HUMIRA [Suspect]
     Indication: PSORIASIS
     Route: 058
     Dates: start: 20100816
  2. CANDESARTAN CILEXETIL AND HYDROCHLOROTHIAZIDE [Concomitant]
     Indication: HYPERTENSION
     Dosage: 32MG/12.5MG ONCE A DAY
     Route: 048
     Dates: start: 20110401

REACTIONS (7)
  - PYREXIA [None]
  - SPUTUM PURULENT [None]
  - MALAISE [None]
  - DYSPNOEA [None]
  - PNEUMONIA [None]
  - ATELECTASIS [None]
  - PRODUCTIVE COUGH [None]
